FAERS Safety Report 8235543-6 (Version None)
Quarter: 2012Q1

REPORT INFORMATION
  Report Type: 
  Country: None (occurrence: None)
  Receive Date: 20120326
  Receipt Date: 20120319
  Transmission Date: 20120608
  Serious: Yes (Hospitalization)
  Sender: FDA-Public Use
  Company Number: US-US-EMD SERONO, INC.-7048246

PATIENT
  Sex: Male

DRUGS (4)
  1. BOTOX [Concomitant]
     Indication: BLADDER DISORDER
  2. UNSPECIFIED ANTIBIOTICS [Suspect]
     Indication: PRODUCT USED FOR UNKNOWN INDICATION
  3. REBIF [Suspect]
     Route: 058
  4. REBIF [Suspect]
     Indication: PRODUCT USED FOR UNKNOWN INDICATION
     Route: 058
     Dates: start: 20070319

REACTIONS (1)
  - CLOSTRIDIAL INFECTION [None]
